FAERS Safety Report 10298332 (Version 1)
Quarter: 2014Q3

REPORT INFORMATION
  Report Type: Report from Study
  Country: MX (occurrence: MX)
  Receive Date: 20140711
  Receipt Date: 20140711
  Transmission Date: 20150326
  Serious: Yes (Disabling, Other)
  Sender: FDA-Public Use
  Company Number: PHHY2014MX085480

PATIENT
  Age: 86 Year
  Sex: Female

DRUGS (7)
  1. EXFORGE [Suspect]
     Active Substance: AMLODIPINE BESYLATE\VALSARTAN
     Dosage: 0.5 DF, QD
  2. LEVIPIL [Concomitant]
     Dosage: 2 DF, QD
     Dates: start: 201406
  3. INSULIN [Concomitant]
     Active Substance: INSULIN NOS
     Indication: DIABETES MELLITUS
     Dosage: 1 DF, QD
     Route: 065
     Dates: start: 201405
  4. TIAMINAL B(12) TRIVALENTE [Concomitant]
     Dosage: 2 DF, QD
  5. METOCLOPRAMIDE. [Concomitant]
     Active Substance: METOCLOPRAMIDE
     Indication: GASTRIC DISORDER
     Dosage: 2 DF, QD
  6. EXFORGE [Suspect]
     Active Substance: AMLODIPINE BESYLATE\VALSARTAN
     Indication: HYPERTENSION
     Dosage: 1 DF, QD
     Dates: start: 201405
  7. VALDOXAN [Concomitant]
     Active Substance: AGOMELATINE
     Indication: STRESS
     Dosage: 1 DF, QD
     Dates: start: 201406

REACTIONS (5)
  - Diplegia [Not Recovered/Not Resolved]
  - Sciatic nerve injury [Not Recovered/Not Resolved]
  - Abasia [Not Recovered/Not Resolved]
  - Blood glucose fluctuation [Not Recovered/Not Resolved]
  - Wrong technique in drug usage process [Not Recovered/Not Resolved]

NARRATIVE: CASE EVENT DATE: 201406
